FAERS Safety Report 8611353-2 (Version None)
Quarter: 2012Q3

REPORT INFORMATION
  Report Type: 
  Country: None (occurrence: None)
  Receive Date: 20120807
  Receipt Date: 20120727
  Transmission Date: 20120928
  Serious: Yes (Hospitalization, Other)
  Sender: FDA-Public Use
  Company Number: ACO_22947_2010

PATIENT
  Age: 57 Year
  Sex: Female
  Weight: 64.9 kg

DRUGS (7)
  1. FENTANYL [Concomitant]
  2. AVONEX [Concomitant]
  3. CLONAZEPAM [Concomitant]
  4. AMPYRA [Suspect]
     Indication: GAIT DISTURBANCE
     Dosage: 10 MG, QD, ORAL, 10 MG, BID, ORAL, 10 MG, BID
     Route: 048
     Dates: start: 20100330, end: 20100101
  5. AMPYRA [Suspect]
     Indication: GAIT DISTURBANCE
     Dosage: 10 MG, QD, ORAL, 10 MG, BID, ORAL, 10 MG, BID
     Route: 048
     Dates: start: 20100510
  6. AMPYRA [Suspect]
     Indication: GAIT DISTURBANCE
     Dosage: 10 MG, QD, ORAL, 10 MG, BID, ORAL, 10 MG, BID
     Route: 048
     Dates: start: 20120106, end: 20120109
  7. AMANTADINE HCL [Concomitant]

REACTIONS (9)
  - HIP FRACTURE [None]
  - MULTIPLE SCLEROSIS RELAPSE [None]
  - URINARY TRACT INFECTION [None]
  - FALL [None]
  - GAIT DISTURBANCE [None]
  - INAPPROPRIATE SCHEDULE OF DRUG ADMINISTRATION [None]
  - ABASIA [None]
  - MUSCULAR WEAKNESS [None]
  - BLOOD URINE PRESENT [None]
